FAERS Safety Report 7237505-4 (Version None)
Quarter: 2011Q1

REPORT INFORMATION
  Report Type: 
  Country: None (occurrence: None)
  Receive Date: 20110121
  Receipt Date: 20110113
  Transmission Date: 20110831
  Serious: Yes (Other)
  Sender: FDA-Public Use
  Company Number: BR-PFIZER INC-2011009484

PATIENT
  Age: 53 Year
  Sex: Female
  Weight: 72 kg

DRUGS (8)
  1. XALATAN [Suspect]
     Indication: OPEN ANGLE GLAUCOMA
     Dosage: 3 UG, 1X/DAY (1 DROP IN EACH EYE, AT NIGHT)
     Route: 047
     Dates: start: 20101101, end: 20110111
  2. BRIMONIDINE [Suspect]
     Dosage: UNK, 2X/DAY
     Dates: start: 20110111
  3. SIMVASTATIN [Concomitant]
     Indication: BLOOD CHOLESTEROL INCREASED
     Dosage: 20 MG, UNK
     Dates: start: 20100101
  4. METADOXINE [Concomitant]
     Indication: HEPATIC STEATOSIS
     Dosage: UNK
  5. CORRELATE GLYCERIN AND POLYSORBATE [Concomitant]
     Dosage: UNK, 3X/DAY
  6. LINSEED OIL [Concomitant]
     Indication: CONSTIPATION
     Dosage: UNK
  7. HYDROCHLOROTHIAZIDE [Concomitant]
     Dosage: 12.5 MG, UNK
     Dates: start: 20070101
  8. VALSARTAN [Concomitant]
     Dosage: 160MG, UNK
     Dates: start: 20070101

REACTIONS (7)
  - EYE PAIN [None]
  - CORNEAL REFLEX DECREASED [None]
  - VISUAL ACUITY REDUCED [None]
  - DRY EYE [None]
  - NERVOUSNESS [None]
  - INFLAMMATION [None]
  - TACHYCARDIA [None]
